FAERS Safety Report 6461983-1 (Version None)
Quarter: 2009Q4

REPORT INFORMATION
  Report Type: 
  Country: None (occurrence: None)
  Receive Date: 20091024
  Receipt Date: 20091109
  Transmission Date: 20100525
  Serious: Yes (Death, Hospitalization)
  Sender: FDA-Public Use
  Company Number: 2009AC000334

PATIENT
  Age: 68 Year
  Sex: Male

DRUGS (27)
  1. DIGOXIN [Suspect]
     Dosage: PO
     Route: 048
  2. ROXANOL [Concomitant]
  3. ATIVAN [Concomitant]
  4. TYLENOL (CAPLET) [Concomitant]
  5. COMPAZINE  /00013302/ [Concomitant]
  6. COLACE [Concomitant]
  7. PROVIGIL [Concomitant]
  8. POTASSIUM [Concomitant]
  9. ZESTRIL [Concomitant]
  10. FUROSEMIDE [Concomitant]
  11. LIPITOR [Concomitant]
  12. PREDNISONE [Concomitant]
  13. METHOTREXATE [Concomitant]
  14. PROTONIX  /01263201/ [Concomitant]
  15. LEXAPRO [Concomitant]
  16. ASPIRIN [Concomitant]
  17. DULCOLAX [Concomitant]
  18. NAMENDA [Concomitant]
  19. FOSAMAX [Concomitant]
  20. CELEBREX [Concomitant]
  21. BENAZEPRIL HYDROCHLORIDE [Concomitant]
  22. ADVAIR DISKUS 100/50 [Concomitant]
  23. ALBUTEROL [Concomitant]
  24. LOTENSIN [Concomitant]
  25. PREDNISONE [Concomitant]
  26. SPIRIVA [Concomitant]
  27. AZITHROMYCIN [Concomitant]

REACTIONS (22)
  - ACUTE RESPIRATORY FAILURE [None]
  - ADRENAL INSUFFICIENCY [None]
  - ANAEMIA [None]
  - BUNDLE BRANCH BLOCK RIGHT [None]
  - CARDIOMYOPATHY [None]
  - CEREBROVASCULAR ACCIDENT [None]
  - CHRONIC OBSTRUCTIVE PULMONARY DISEASE [None]
  - DEMENTIA ALZHEIMER'S TYPE [None]
  - DYSLIPIDAEMIA [None]
  - ECONOMIC PROBLEM [None]
  - HYPERGLYCAEMIA [None]
  - HYPERTENSION [None]
  - INJURY [None]
  - LEUKOCYTOSIS [None]
  - NERVOUS SYSTEM DISORDER [None]
  - OSTEOARTHRITIS [None]
  - PARKINSONISM [None]
  - PNEUMONIA ASPIRATION [None]
  - PNEUMONIA STAPHYLOCOCCAL [None]
  - SEPTIC SHOCK [None]
  - THROMBOCYTOPENIA [None]
  - VASCULAR DEMENTIA [None]
